FAERS Safety Report 9366419 (Version 3)
Quarter: 2013Q3

REPORT INFORMATION
  Report Type: Spontaneous
  Country: US (occurrence: US)
  Receive Date: 20130625
  Receipt Date: 20130930
  Transmission Date: 20140515
  Serious: No
  Sender: FDA-Public Use
  Company Number: US-PFIZER INC-2013184208

PATIENT
  Sex: 0

DRUGS (2)
  1. ATORVASTATIN CALCIUM [Suspect]
     Dosage: UNK
  2. COREG [Suspect]
     Dosage: 25 MG, UNK

REACTIONS (2)
  - Arrhythmia [Unknown]
  - Dyspnoea [Unknown]
